FAERS Safety Report 12621200 (Version 1)
Quarter: 2016Q3

REPORT INFORMATION
  Report Type: Spontaneous
  Country: US (occurrence: None)
  Receive Date: 20160803
  Receipt Date: 20160803
  Transmission Date: 20161109
  Serious: Yes (Other)
  Sender: FDA-Public Use
  Company Number: None

PATIENT
  Age: 51 Year
  Sex: Female
  Weight: 65.77 kg

DRUGS (1)
  1. ESCITALOPRAM, 10 MG [Suspect]
     Active Substance: ESCITALOPRAM OXALATE
     Indication: DEPRESSION
     Route: 048
     Dates: start: 20160619, end: 20160622

REACTIONS (6)
  - Dyspnoea [None]
  - Feeling abnormal [None]
  - Product substitution issue [None]
  - Drug ineffective [None]
  - Toxicity to various agents [None]
  - Product formulation issue [None]

NARRATIVE: CASE EVENT DATE: 20160619
